FAERS Safety Report 11164122 (Version 1)
Quarter: 2015Q2

REPORT INFORMATION
  Report Type: Spontaneous
  Country: US (occurrence: US)
  Receive Date: 20150604
  Receipt Date: 20150604
  Transmission Date: 20150821
  Serious: No
  Sender: FDA-Public Use
  Company Number: US-TARO-2015TAR00247

PATIENT
  Age: 1 Year
  Sex: Female
  Weight: 9.6 kg

DRUGS (2)
  1. FEVERALL [Suspect]
     Active Substance: ACETAMINOPHEN
     Indication: PYREXIA
     Dosage: 80 MG, ONCE
     Route: 054
     Dates: start: 20150318, end: 20150318
  2. FEVERALL [Suspect]
     Active Substance: ACETAMINOPHEN
     Dosage: 80 MG, ONCE
     Route: 054
     Dates: start: 20150320, end: 20150320

REACTIONS (1)
  - Drug ineffective [Not Recovered/Not Resolved]

NARRATIVE: CASE EVENT DATE: 20150319
